FAERS Safety Report 8319494-4 (Version None)
Quarter: 2012Q2

REPORT INFORMATION
  Report Type: 
  Country: None (occurrence: None)
  Receive Date: 20120427
  Receipt Date: 20120419
  Transmission Date: 20120825
  Serious: Yes (Hospitalization, Other)
  Sender: FDA-Public Use
  Company Number: US-BAYER-2011-105720

PATIENT
  Age: 23 Year
  Sex: Female
  Weight: 56.689 kg

DRUGS (4)
  1. FISH OIL [Concomitant]
     Indication: CARDIOVASCULAR DISORDER
     Dosage: UNK
     Dates: start: 20100301
  2. NATTOKINASE [Concomitant]
     Indication: CARDIOVASCULAR DISORDER
     Dosage: UNK
     Dates: start: 20100301
  3. YASMIN [Suspect]
     Indication: MENSTRUATION IRREGULAR
  4. YASMIN [Suspect]
     Indication: ORAL CONTRACEPTION
     Dosage: UNK
     Route: 048
     Dates: start: 20030101, end: 20080101

REACTIONS (21)
  - RASH [None]
  - ABASIA [None]
  - SPIDER VEIN [None]
  - MENTAL DISORDER [None]
  - THROMBOPHLEBITIS SUPERFICIAL [None]
  - MOBILITY DECREASED [None]
  - ANGER [None]
  - DIZZINESS [None]
  - DEEP VEIN THROMBOSIS [None]
  - DEPRESSION [None]
  - CRYING [None]
  - BEDRIDDEN [None]
  - CYST [None]
  - OEDEMA PERIPHERAL [None]
  - DISTURBANCE IN ATTENTION [None]
  - FATIGUE [None]
  - CONFUSIONAL STATE [None]
  - MENORRHAGIA [None]
  - PAIN IN EXTREMITY [None]
  - HEADACHE [None]
  - CONTUSION [None]
